FAERS Safety Report 7708903-7 (Version None)
Quarter: 2011Q3

REPORT INFORMATION
  Report Type: 
  Country: None (occurrence: None)
  Receive Date: 20110819
  Receipt Date: 20110805
  Transmission Date: 20111222
  Serious: Yes (Other)
  Sender: FDA-Public Use
  Company Number: NGX_00553_2011

PATIENT
  Sex: Female
  Weight: 74 kg

DRUGS (4)
  1. TRANSTEC PRO [Concomitant]
  2. QUTENZA [Suspect]
     Indication: PAIN
     Dosage: (DF [PATCH] TOPICAL)
     Route: 061
     Dates: start: 20110727, end: 20110727
  3. TOLPERISONE [Concomitant]
  4. AMITRIPTYLINE HCL [Concomitant]

REACTIONS (6)
  - APPLICATION SITE ERYTHEMA [None]
  - CARDIOVASCULAR DISORDER [None]
  - HYPERHIDROSIS [None]
  - LISTLESS [None]
  - BODY TEMPERATURE INCREASED [None]
  - APPLICATION SITE PAIN [None]
